FAERS Safety Report 18872633 (Version 1)
Quarter: 2021Q1

REPORT INFORMATION
  Report Type: Spontaneous
  Country: US (occurrence: US)
  Receive Date: 20210209
  Receipt Date: 20210209
  Transmission Date: 20210420
  Serious: Yes (Death)
  Sender: FDA-Public Use
  Company Number: None

PATIENT
  Age: 77 Year
  Sex: Female

DRUGS (10)
  1. AMBRISENTAN 10MG TAB [Suspect]
     Active Substance: AMBRISENTAN
     Indication: PULMONARY ARTERIAL HYPERTENSION
     Route: 048
     Dates: start: 20190830, end: 20210203
  2. TADALAFIL. [Suspect]
     Active Substance: TADALAFIL
  3. ESOMEPRA MAG CAP [Suspect]
     Active Substance: ESOMEPRAZOLE MAGNESIUM
  4. LEVOTHYROXIN [Suspect]
     Active Substance: LEVOTHYROXINE
  5. AMITRIPTYLIN [Suspect]
     Active Substance: AMITRIPTYLINE
  6. FUROSEMIDE. [Suspect]
     Active Substance: FUROSEMIDE
  7. UPTRAVI [Suspect]
     Active Substance: SELEXIPAG
  8. HYDROCHLOROT [Suspect]
     Active Substance: HYDROCHLOROTHIAZIDE
  9. ZOLPIDEM [Suspect]
     Active Substance: ZOLPIDEM TARTRATE
  10. OXYCODONE AND ACETAMINOPHEN [Suspect]
     Active Substance: ACETAMINOPHEN\OXYCODONE HYDROCHLORIDE

REACTIONS (1)
  - Death [None]

NARRATIVE: CASE EVENT DATE: 20210203
